FAERS Safety Report 4974605-3 (Version None)
Quarter: 2006Q1

REPORT INFORMATION
  Report Type: 
  Country: None (occurrence: None)
  Receive Date: 20060216
  Receipt Date: 20050726
  Transmission Date: 20060701
  Serious: Yes (Hospitalization)
  Sender: FDA-Public Use
  Company Number: PHEH2005US08275

PATIENT
  Sex: 0

DRUGS (2)
  1. STARLIX [Suspect]
     Dosage: ORAL
     Route: 048
  2. AVANDIA [Concomitant]

REACTIONS (1)
  - HYPERGLYCAEMIA [None]
